FAERS Safety Report 14473411 (Version 1)
Quarter: 2018Q1

REPORT INFORMATION
  Report Type: Spontaneous
  Country: US (occurrence: US)
  Receive Date: 20180201
  Receipt Date: 20180201
  Transmission Date: 20180509
  Serious: No
  Sender: FDA-Public Use
  Company Number: US-AUROBINDO-AUR-APL-2017-41865

PATIENT
  Sex: Male

DRUGS (1)
  1. DULOXETINE DELAYED-RELEASE CAPSULES USP 20 MG [Suspect]
     Active Substance: DULOXETINE
     Indication: NEURALGIA
     Dosage: 20 MG, DAILY
     Route: 065

REACTIONS (3)
  - Constipation [Unknown]
  - Diarrhoea [Unknown]
  - Drug effect decreased [Unknown]
